FAERS Safety Report 20821489 (Version 3)
Quarter: 2023Q2

REPORT INFORMATION
  Report Type: Spontaneous
  Country: US (occurrence: US)
  Receive Date: 20220512
  Receipt Date: 20230612
  Transmission Date: 20230722
  Serious: Yes (Other)
  Sender: FDA-Public Use
  Company Number: US-PFIZER INC-202200070214

PATIENT
  Age: 60 Year
  Sex: Female

DRUGS (1)
  1. XELJANZ XR [Suspect]
     Active Substance: TOFACITINIB CITRATE
     Dosage: 11 MG, DAILY (TAKE 1 TABLET (11 MG TOTAL)/11MG 1 DAILY)
     Route: 048

REACTIONS (3)
  - Diabetes mellitus [Unknown]
  - COVID-19 [Unknown]
  - Urinary tract infection [Unknown]
